FAERS Safety Report 8278215-4 (Version None)
Quarter: 2012Q2

REPORT INFORMATION
  Report Type: 
  Country: None (occurrence: None)
  Receive Date: 20120412
  Receipt Date: 20120227
  Transmission Date: 20120825
  Serious: No
  Sender: FDA-Public Use
  Company Number: US-ASTRAZENECA-2012SE13564

PATIENT
  Age: 32 Year
  Sex: Male
  Weight: 90.7 kg

DRUGS (3)
  1. LOVAZA [Concomitant]
     Indication: BLOOD CHOLESTEROL ABNORMAL
  2. NEXIUM [Suspect]
     Indication: GASTROOESOPHAGEAL REFLUX DISEASE
     Route: 048
  3. PANTOPRAZOLE [Concomitant]

REACTIONS (2)
  - ABDOMINAL DISCOMFORT [None]
  - DRUG DOSE OMISSION [None]
